FAERS Safety Report 4331072-0 (Version None)
Quarter: 2004Q2

REPORT INFORMATION
  Report Type: 
  Country: None (occurrence: None)
  Receive Date: 20040405
  Receipt Date: 20031022
  Transmission Date: 20050107
  Serious: Yes (Hospitalization)
  Sender: FDA-Public Use
  Company Number: PHRM2003FR02811

PATIENT
  Age: 70 Year
  Sex: Female
  Weight: 82 kg

DRUGS (8)
  1. CIBACENE [Suspect]
     Dosage: 1 DF, QD
     Route: 048
  2. TEGRETOL [Suspect]
     Indication: EPILEPSY
     Dosage: 300 MG, BID
     Route: 048
  3. IMOVANE [Suspect]
     Dosage: 3.75 MG, QD
     Route: 048
     Dates: start: 20030320
  4. LAROXYL [Suspect]
     Dosage: 50 MG, QD
     Route: 048
  5. VALIUM [Suspect]
     Dosage: 40 DF, BID
     Route: 048
  6. MONO-TILDIEM - SLOW RELEASE [Suspect]
     Dosage: 200 MG, QD
     Route: 048
  7. DIAMICRON [Suspect]
     Dosage: 2 DF, BID
     Route: 048
  8. GLUCOR [Suspect]
     Dosage: 3 DF/DAY
     Route: 048

REACTIONS (4)
  - AKATHISIA [None]
  - DYSKINESIA [None]
  - EXCITABILITY [None]
  - SOCIAL AVOIDANT BEHAVIOUR [None]
